FAERS Safety Report 7495197-3 (Version None)
Quarter: 2011Q2

REPORT INFORMATION
  Report Type: 
  Country: None (occurrence: None)
  Receive Date: 20110520
  Receipt Date: 20110511
  Transmission Date: 20111010
  Serious: Yes (Other)
  Sender: FDA-Public Use
  Company Number: US-ASTRAZENECA-2011SE28137

PATIENT
  Age: 25 Year
  Sex: Female
  Weight: 138.3 kg

DRUGS (3)
  1. SEROQUEL [Suspect]
     Indication: DEPRESSION
     Route: 048
  2. LAMICTAL [Concomitant]
     Indication: DEPRESSION
  3. SEROQUEL [Suspect]
     Route: 048

REACTIONS (5)
  - PSYCHOTIC DISORDER [None]
  - SOMNOLENCE [None]
  - INTENTIONAL SELF-INJURY [None]
  - AGGRESSION [None]
  - ANGER [None]
